FAERS Safety Report 23505047 (Version 1)
Quarter: 2024Q1

REPORT INFORMATION
  Report Type: Spontaneous
  Country: US (occurrence: US)
  Receive Date: 20240209
  Receipt Date: 20240209
  Transmission Date: 20240410
  Serious: No
  Sender: FDA-Public Use
  Company Number: CID000000000043178

PATIENT
  Sex: Female

DRUGS (1)
  1. WARFARIN SODIUM [Suspect]
     Active Substance: WARFARIN SODIUM
     Indication: Product used for unknown indication
     Route: 065

REACTIONS (1)
  - Adverse event [Unknown]
